FAERS Safety Report 12856437 (Version 1)
Quarter: 2016Q4

REPORT INFORMATION
  Report Type: Spontaneous
  Country: US (occurrence: US)
  Receive Date: 20161017
  Receipt Date: 20161017
  Transmission Date: 20170207
  Serious: Yes (Other)
  Sender: FDA-Public Use
  Company Number: None

PATIENT
  Sex: Female
  Weight: 45.76 kg

DRUGS (1)
  1. HYDROXYCHLOROQUINE 200MG [Suspect]
     Active Substance: HYDROXYCHLOROQUINE
     Indication: SYSTEMIC LUPUS ERYTHEMATOSUS
     Route: 048
     Dates: start: 20160913, end: 20160930

REACTIONS (3)
  - Abdominal distension [None]
  - Abdominal pain upper [None]
  - Diarrhoea [None]
